FAERS Safety Report 5750193-9 (Version None)
Quarter: 2008Q2

REPORT INFORMATION
  Report Type: 
  Country: None (occurrence: None)
  Receive Date: 20080527
  Receipt Date: 20080515
  Transmission Date: 20081010
  Serious: Yes (Death, Other)
  Sender: FDA-Public Use
  Company Number: FR-PFIZER INC-2008042328

PATIENT
  Age: 96 Year
  Sex: Male

DRUGS (3)
  1. LYRICA [Suspect]
     Indication: NEURALGIA
  2. AUGMENTIN '125' [Suspect]
     Indication: URINARY TRACT INFECTION
  3. DANAZOL [Suspect]
     Indication: BONE MARROW FAILURE

REACTIONS (4)
  - ACUTE LEUKAEMIA [None]
  - BONE MARROW FAILURE [None]
  - NIGHTMARE [None]
  - URINARY TRACT INFECTION [None]
